FAERS Safety Report 16970949 (Version 1)
Quarter: 2019Q4

REPORT INFORMATION
  Report Type: Spontaneous
  Country: US (occurrence: US)
  Receive Date: 20191029
  Receipt Date: 20191029
  Transmission Date: 20200122
  Serious: Yes (Other)
  Sender: FDA-Public Use
  Company Number: US-GALDERMA-US19064326

PATIENT
  Age: 9 Decade
  Sex: Male

DRUGS (9)
  1. SOOLANTRA [Suspect]
     Active Substance: IVERMECTIN
     Indication: RASH PUSTULAR
     Route: 065
  2. HYDROXYUREA. [Concomitant]
     Active Substance: HYDROXYUREA
     Indication: POLYCYTHAEMIA VERA
     Route: 065
  3. DOXYCYCLINE. [Concomitant]
     Active Substance: DOXYCYCLINE
     Indication: EVIDENCE BASED TREATMENT
     Route: 065
  4. CLINDAMYCIN. [Concomitant]
     Active Substance: CLINDAMYCIN
     Indication: RASH PUSTULAR
     Route: 061
  5. RUXOLITINIB [Concomitant]
     Active Substance: RUXOLITINIB
     Indication: POLYCYTHAEMIA VERA
     Route: 065
  6. PREDNISONE. [Concomitant]
     Active Substance: PREDNISONE
     Indication: RASH PUSTULAR
     Route: 048
  7. PIMECROLIMUS. [Concomitant]
     Active Substance: PIMECROLIMUS
     Indication: RASH PUSTULAR
     Dosage: CREAM
     Route: 061
  8. CHLORHEXIDINE [Concomitant]
     Active Substance: CHLORHEXIDINE
     Indication: RASH PUSTULAR
     Dosage: WASHES
     Route: 065
  9. TOPICAL STEROIDS [Concomitant]
     Active Substance: UNSPECIFIED INGREDIENT
     Indication: RASH PUSTULAR

REACTIONS (3)
  - Squamous cell carcinoma [Not Recovered/Not Resolved]
  - Intentional product use issue [Recovered/Resolved]
  - Drug ineffective for unapproved indication [Recovered/Resolved]
